FAERS Safety Report 8142791-2 (Version None)
Quarter: 2012Q1

REPORT INFORMATION
  Report Type: 
  Country: None (occurrence: None)
  Receive Date: 20120216
  Receipt Date: 20120208
  Transmission Date: 20120608
  Serious: Yes (Hospitalization, Disabling, Other)
  Sender: FDA-Public Use
  Company Number: US-MERCK-1201USA00793

PATIENT
  Age: 73 Year
  Sex: Female
  Weight: 68 kg

DRUGS (4)
  1. FOSAMAX [Suspect]
     Route: 048
     Dates: start: 19960101
  2. FOSAMAX [Suspect]
     Indication: OSTEOPENIA
     Route: 048
     Dates: start: 20010101, end: 20100101
  3. FOSAMAX [Suspect]
     Indication: OSTEOPOROSIS
     Route: 048
     Dates: start: 20010101, end: 20100101
  4. FOSAMAX [Suspect]
     Route: 048
     Dates: start: 19960101

REACTIONS (91)
  - ABDOMINAL DISCOMFORT [None]
  - ATELECTASIS [None]
  - CEREBROVASCULAR DISORDER [None]
  - HEADACHE [None]
  - OEDEMA PERIPHERAL [None]
  - MITRAL VALVE INCOMPETENCE [None]
  - UPPER RESPIRATORY TRACT INFECTION [None]
  - SPONDYLOLISTHESIS [None]
  - WEIGHT DECREASED [None]
  - MUSCULAR WEAKNESS [None]
  - PARANOIA [None]
  - ORTHOSTATIC HYPOTENSION [None]
  - DIZZINESS [None]
  - TOXIC ENCEPHALOPATHY [None]
  - SKELETAL INJURY [None]
  - BREAST HAEMATOMA [None]
  - GAIT DISTURBANCE [None]
  - OEDEMA [None]
  - MENISCUS LESION [None]
  - URINARY INCONTINENCE [None]
  - PAIN IN EXTREMITY [None]
  - LACERATION [None]
  - IRRITABILITY [None]
  - HYPERLIPIDAEMIA [None]
  - FEMUR FRACTURE [None]
  - ACUTE SINUSITIS [None]
  - ADVERSE DRUG REACTION [None]
  - BARRETT'S OESOPHAGUS [None]
  - ABNORMAL BEHAVIOUR [None]
  - HUMERUS FRACTURE [None]
  - FIBROMYALGIA [None]
  - BURSITIS [None]
  - OROPHARYNGEAL PAIN [None]
  - PNEUMONIA [None]
  - SINUSITIS [None]
  - DEPRESSION [None]
  - COLONIC POLYP [None]
  - HAEMORRHAGIC ANAEMIA [None]
  - RENAL FAILURE CHRONIC [None]
  - URINARY TRACT INFECTION [None]
  - FLUID RETENTION [None]
  - NORMOCHROMIC NORMOCYTIC ANAEMIA [None]
  - MERALGIA PARAESTHETICA [None]
  - XEROSIS [None]
  - REFRACTORY ANAEMIA [None]
  - DRUG HYPERSENSITIVITY [None]
  - OSTEOARTHRITIS [None]
  - INGROWING NAIL [None]
  - EARLY SATIETY [None]
  - DYSPNOEA [None]
  - DYSPHAGIA [None]
  - CHEST DISCOMFORT [None]
  - HAEMATOCHEZIA [None]
  - FALL [None]
  - RASH [None]
  - DEMENTIA ALZHEIMER'S TYPE [None]
  - CARDIAC FAILURE CONGESTIVE [None]
  - CATARACT [None]
  - HYPERCHOLESTEROLAEMIA [None]
  - MYELODYSPLASTIC SYNDROME [None]
  - TRICUSPID VALVE INCOMPETENCE [None]
  - PULMONARY VALVE INCOMPETENCE [None]
  - SCIATICA [None]
  - ONYCHOGRYPHOSIS [None]
  - HYPOTHYROIDISM [None]
  - CONFUSIONAL STATE [None]
  - CLAVICLE FRACTURE [None]
  - AORTIC CALCIFICATION [None]
  - FATIGUE [None]
  - ROAD TRAFFIC ACCIDENT [None]
  - PHARYNGITIS [None]
  - DILATATION VENTRICULAR [None]
  - LARYNGITIS [None]
  - INAPPROPRIATE SCHEDULE OF DRUG ADMINISTRATION [None]
  - PNEUMONIA KLEBSIELLA [None]
  - HYPONATRAEMIA [None]
  - ANXIETY [None]
  - HYPOACUSIS [None]
  - LUNG DISORDER [None]
  - TONGUE INJURY [None]
  - RENAL CYST [None]
  - OTITIS MEDIA [None]
  - ONYCHOMYCOSIS [None]
  - GASTROINTESTINAL OEDEMA [None]
  - ECZEMA [None]
  - DEMENTIA [None]
  - RENAL FAILURE ACUTE [None]
  - MUSCULOSKELETAL PAIN [None]
  - VERTIGO [None]
  - RENAL ATROPHY [None]
  - DIVERTICULUM [None]
